FAERS Safety Report 12205267 (Version 1)
Quarter: 2016Q1

REPORT INFORMATION
  Report Type: Spontaneous
  Country: GR (occurrence: GR)
  Receive Date: 20160323
  Receipt Date: 20160323
  Transmission Date: 20160526
  Serious: Yes (Hospitalization, Other)
  Sender: FDA-Public Use
  Company Number: GR-PFIZER INC-2016168926

PATIENT
  Age: 72 Year

DRUGS (4)
  1. DICLOFENAC [Suspect]
     Active Substance: DICLOFENAC
     Dosage: UNK
  2. CARVEDILOL. [Suspect]
     Active Substance: CARVEDILOL
     Dosage: 6.25 MG, 2X/DAY
  3. IRBESARTAN. [Suspect]
     Active Substance: IRBESARTAN
     Dosage: 300 MG, 1X/DAY
  4. AMILORIDE HYDROCHLORIDE/FUROSEMIDE [Suspect]
     Active Substance: AMILORIDE HYDROCHLORIDE\FUROSEMIDE
     Dosage: 1 DF, 2X/DAY (40+5) MG)

REACTIONS (6)
  - Hyperkalaemia [Recovered/Resolved]
  - Orthostatic hypotension [Recovered/Resolved]
  - Renal impairment [Recovered/Resolved]
  - Hyponatraemia [Recovered/Resolved]
  - Muscular weakness [Recovered/Resolved]
  - Product use issue [Recovered/Resolved]
